FAERS Safety Report 14814266 (Version 1)
Quarter: 2018Q2

REPORT INFORMATION
  Report Type: Spontaneous
  Country: FR (occurrence: FR)
  Receive Date: 20180426
  Receipt Date: 20180426
  Transmission Date: 20180711
  Serious: Yes (Other)
  Sender: FDA-Public Use
  Company Number: FR-MERCK KGAA-2046601

PATIENT
  Age: 64 Year
  Sex: Female

DRUGS (1)
  1. NOVOTHYROX [Suspect]
     Active Substance: LEVOTHYROXINE SODIUM
     Indication: AUTOIMMUNE THYROIDITIS

REACTIONS (25)
  - Bone pain [Recovering/Resolving]
  - Blood creatinine decreased [Recovering/Resolving]
  - Muscle spasms [Recovering/Resolving]
  - Dyspnoea [Recovering/Resolving]
  - Fall [Recovering/Resolving]
  - Middle insomnia [Recovering/Resolving]
  - Myalgia [Recovering/Resolving]
  - Weight increased [Recovering/Resolving]
  - Vision blurred [Recovering/Resolving]
  - Pruritus [Recovering/Resolving]
  - Tachycardia [Recovering/Resolving]
  - Blood thyroid stimulating hormone decreased [Recovering/Resolving]
  - Shock [Recovering/Resolving]
  - Contusion [Recovering/Resolving]
  - Decreased activity [Recovering/Resolving]
  - Anxiety [Recovering/Resolving]
  - Glomerular filtration rate [Recovering/Resolving]
  - Ligament sprain [Recovering/Resolving]
  - Fatigue [Recovering/Resolving]
  - Loss of libido [Recovering/Resolving]
  - Mood swings [Recovering/Resolving]
  - Vertigo [Recovering/Resolving]
  - Restlessness [Recovering/Resolving]
  - Headache [Recovering/Resolving]
  - Alopecia [Recovering/Resolving]

NARRATIVE: CASE EVENT DATE: 20160811
